FAERS Safety Report 6519236-9 (Version None)
Quarter: 2009Q4

REPORT INFORMATION
  Report Type: 
  Country: None (occurrence: None)
  Receive Date: 20091228
  Receipt Date: 20091216
  Transmission Date: 20100525
  Serious: Yes (Hospitalization, Other)
  Sender: FDA-Public Use
  Company Number: PHHY2009KR36390

PATIENT
  Sex: Female

DRUGS (1)
  1. ACLASTA [Suspect]
     Indication: OSTEOPOROSIS
     Dosage: 5 MG, UNK
     Route: 042
     Dates: start: 20090815

REACTIONS (7)
  - FALL [None]
  - GAIT DISTURBANCE [None]
  - MYALGIA [None]
  - SPINAL FRACTURE [None]
  - SPINAL OPERATION [None]
  - TENDON PAIN [None]
  - WHEELCHAIR USER [None]
